FAERS Safety Report 26195326 (Version 1)
Quarter: 2025Q4

REPORT INFORMATION
  Report Type: Spontaneous
  Country: US (occurrence: US)
  Receive Date: 20251224
  Receipt Date: 20251224
  Transmission Date: 20260118
  Serious: Yes (Hospitalization)
  Sender: MYLAN
  Company Number: US-MYLANLABS-2025M1108583

PATIENT
  Age: 42 Year
  Sex: Male

DRUGS (7)
  1. CLONIDINE [Suspect]
     Active Substance: CLONIDINE
     Indication: Withdrawal syndrome
     Dosage: UNK
  2. FAMOTIDINE [Suspect]
     Active Substance: FAMOTIDINE
     Indication: Withdrawal syndrome
     Dosage: UNK
  3. QUETIAPINE [Suspect]
     Active Substance: QUETIAPINE
     Indication: Withdrawal syndrome
     Dosage: UNK
  4. ONDANSETRON [Concomitant]
     Active Substance: ONDANSETRON
     Indication: Nausea
     Dosage: UNK
  5. ONDANSETRON [Concomitant]
     Active Substance: ONDANSETRON
     Indication: Vomiting
  6. SUBOXONE [Concomitant]
     Active Substance: BUPRENORPHINE HYDROCHLORIDE\NALOXONE HYDROCHLORIDE
     Indication: Drug use disorder
     Dosage: UNK
  7. BUPRENORPHINE [Concomitant]
     Active Substance: BUPRENORPHINE
     Indication: Drug use disorder
     Dosage: UNK, RECEIVED MULTIPLE TIMES AT LOW DOSE

REACTIONS (2)
  - Drug ineffective for unapproved indication [Unknown]
  - Off label use [Unknown]
